FAERS Safety Report 4290541-2 (Version None)
Quarter: 2004Q1

REPORT INFORMATION
  Report Type: 
  Country: None (occurrence: None)
  Receive Date: 20040209
  Receipt Date: 20030227
  Transmission Date: 20041129
  Serious: Yes (Hospitalization, Other)
  Sender: FDA-Public Use
  Company Number: KII-2003-0007038

PATIENT
  Age: 62 Year
  Sex: Male

DRUGS (2)
  1. MORPHINE SULFATE [Suspect]
     Indication: DRUG USE FOR UNKNOWN INDICATION
     Dosage: UNK
  2. BENZODIAZEPINE DERIVATIVES() [Suspect]
     Indication: DRUG USE FOR UNKNOWN INDICATION
     Dosage: UNK

REACTIONS (8)
  - ACIDOSIS [None]
  - BLOOD PRESSURE SYSTOLIC DECREASED [None]
  - DEPRESSED LEVEL OF CONSCIOUSNESS [None]
  - LETHARGY [None]
  - MULTIPLE DRUG OVERDOSE [None]
  - OXYGEN SATURATION DECREASED [None]
  - PYREXIA [None]
  - RESPIRATORY DEPRESSION [None]
